FAERS Safety Report 9743317 (Version 2)
Quarter: 2013Q4

REPORT INFORMATION
  Report Type: Spontaneous
  Country: US (occurrence: US)
  Receive Date: 20131210
  Receipt Date: 20131210
  Transmission Date: 20140711
  Serious: No
  Sender: FDA-Public Use
  Company Number: US-GILEAD-2009-0025509

PATIENT
  Sex: Female
  Weight: 97.52 kg

DRUGS (28)
  1. LETAIRIS [Suspect]
     Indication: PULMONARY ARTERIAL HYPERTENSION
     Route: 048
     Dates: start: 20090119
  2. NEURONTIN [Concomitant]
  3. HYDROCODONE/APAP [Concomitant]
  4. BUMEX [Concomitant]
  5. COREG [Concomitant]
  6. ALDACTONE [Concomitant]
  7. ALTACE [Concomitant]
  8. ZOLOFT [Concomitant]
  9. COUMADIN [Concomitant]
  10. ZOCOR [Concomitant]
  11. REVATIO [Concomitant]
  12. PYRIDIUM [Concomitant]
  13. XANAX [Concomitant]
  14. COLACE [Concomitant]
  15. NIACIN [Concomitant]
  16. AMBIEN [Concomitant]
  17. ASPIRIN [Concomitant]
  18. ELAVIL [Concomitant]
  19. VITAMIN B12 [Concomitant]
  20. PAXIL [Concomitant]
  21. POTASSIUM CHLORIDE [Concomitant]
  22. SYNTHROID [Concomitant]
  23. TORADOL [Concomitant]
  24. COMPAZINE [Concomitant]
  25. PHENERGAN [Concomitant]
  26. CORVALEN [Concomitant]
  27. VICODIN ES [Concomitant]
  28. OXYGEN [Concomitant]

REACTIONS (16)
  - Hypogeusia [Unknown]
  - Regurgitation [Unknown]
  - Muscle spasms [Unknown]
  - Fatigue [Unknown]
  - Abdominal pain lower [Unknown]
  - Weight decreased [Unknown]
  - Lacrimation increased [Unknown]
  - Pruritus [Unknown]
  - Hepatic steatosis [Unknown]
  - Chest pain [Unknown]
  - Tinnitus [Unknown]
  - Headache [Unknown]
  - Nausea [Unknown]
  - Hot flush [Unknown]
  - Abdominal pain [Unknown]
  - Nasal congestion [Unknown]
